FAERS Safety Report 18405136 (Version 3)
Quarter: 2020Q4

REPORT INFORMATION
  Report Type: Spontaneous
  Country: US (occurrence: US)
  Receive Date: 20201020
  Receipt Date: 20201209
  Transmission Date: 20210114
  Serious: No
  Sender: FDA-Public Use
  Company Number: US-PFIZER INC-2020405422

PATIENT
  Age: 96 Year
  Sex: Female
  Weight: 54.42 kg

DRUGS (1)
  1. IBRANCE [Suspect]
     Active Substance: PALBOCICLIB
     Indication: BREAST CANCER FEMALE
     Dosage: 100 MG, CYCLIC (1 DAILY FOR 21 DAYS)
     Route: 048
     Dates: start: 202010

REACTIONS (3)
  - Diarrhoea [Unknown]
  - Anal incontinence [Unknown]
  - Eye irritation [Unknown]

NARRATIVE: CASE EVENT DATE: 2020
